FAERS Safety Report 18674979 (Version 1)
Quarter: 2020Q4

REPORT INFORMATION
  Report Type: Spontaneous
  Country: US (occurrence: US)
  Receive Date: 20201228
  Receipt Date: 20201228
  Transmission Date: 20210114
  Serious: No
  Sender: FDA-Public Use
  Company Number: None

PATIENT
  Sex: Male

DRUGS (14)
  1. SPRYCEL [Suspect]
     Active Substance: DASATINIB
     Indication: MYELOID LEUKAEMIA
     Route: 048
     Dates: start: 20150911
  2. MYRBETRIQ [Concomitant]
     Active Substance: MIRABEGRON
  3. SEROQUEL [Concomitant]
     Active Substance: QUETIAPINE FUMARATE
  4. CLARITIN [Concomitant]
     Active Substance: LORATADINE
  5. HYDROCO/APAP [Concomitant]
     Active Substance: ACETAMINOPHEN\HYDROCODONE
  6. FLONASE [Concomitant]
     Active Substance: FLUTICASONE PROPIONATE
  7. SPRYCEL [Concomitant]
     Active Substance: DASATINIB
  8. METHYLPHENID [Concomitant]
     Active Substance: METHYLPHENIDATE
  9. XANAX [Concomitant]
     Active Substance: ALPRAZOLAM
  10. METOPRO/HCTZ [Concomitant]
  11. CYMBALTA [Concomitant]
     Active Substance: DULOXETINE HYDROCHLORIDE
  12. FLEXERIL [Concomitant]
     Active Substance: CYCLOBENZAPRINE HYDROCHLORIDE
  13. VIT D [Concomitant]
     Active Substance: VITAMIN D NOS
  14. MOMETASONE [Concomitant]
     Active Substance: MOMETASONE

REACTIONS (3)
  - Night sweats [None]
  - Fatigue [None]
  - Headache [None]
